FAERS Safety Report 17164343 (Version 1)
Quarter: 2019Q4

REPORT INFORMATION
  Report Type: Spontaneous
  Country: TR (occurrence: TR)
  Receive Date: 20191217
  Receipt Date: 20191217
  Transmission Date: 20200122
  Serious: Yes (Hospitalization, Congenital Anomaly)
  Sender: FDA-Public Use
  Company Number: TR-MYLANLABS-2019M1125364

PATIENT
  Sex: Male
  Weight: 2.12 kg

DRUGS (3)
  1. DELTACORTRIL [Concomitant]
     Active Substance: PREDNISOLONE
     Indication: RENAL TRANSPLANT
     Dosage: 2.5 MILLIGRAM, QD
     Route: 048
  2. PROGRAF [Concomitant]
     Active Substance: TACROLIMUS
     Indication: RENAL TRANSPLANT
     Dosage: 6 GRAM, QD
     Route: 064
  3. MERCAPTAMINE MYLAN [Suspect]
     Active Substance: CYSTEAMINE
     Indication: CYSTINOSIS
     Dosage: 1800 MILLIGRAM
     Route: 064
     Dates: end: 20170124

REACTIONS (3)
  - Transient tachypnoea of the newborn [Unknown]
  - Hypochondroplasia [Unknown]
  - Foetal exposure during pregnancy [Recovered/Resolved]

NARRATIVE: CASE EVENT DATE: 2017
